FAERS Safety Report 4688300-1 (Version None)
Quarter: 2005Q2

REPORT INFORMATION
  Report Type: 
  Country: None (occurrence: None)
  Receive Date: 20050610
  Receipt Date: 20050307
  Transmission Date: 20051028
  Serious: Yes (Hospitalization, Other)
  Sender: FDA-Public Use
  Company Number: US-MERCK-0503USA01238

PATIENT
  Age: 53 Year
  Sex: Female
  Weight: 87 kg

DRUGS (8)
  1. VIOXX [Suspect]
     Indication: ARTHRITIS
     Route: 048
     Dates: start: 20000720, end: 20030101
  2. VIOXX [Suspect]
     Route: 048
     Dates: start: 20000720, end: 20030101
  3. VIOXX [Suspect]
     Indication: FIBROMYALGIA
     Route: 048
     Dates: start: 20000720, end: 20030101
  4. VIOXX [Suspect]
     Route: 048
     Dates: start: 20000720, end: 20030101
  5. ESTRACE [Concomitant]
     Route: 065
  6. CAPTOPRIL [Concomitant]
     Route: 065
  7. ACCUPRIL [Concomitant]
     Route: 065
     Dates: start: 19970101
  8. FLEXERIL [Concomitant]
     Route: 065

REACTIONS (8)
  - BLOOD CHOLESTEROL INCREASED [None]
  - CEREBROVASCULAR ACCIDENT [None]
  - CHEST PAIN [None]
  - DEPRESSION [None]
  - DIABETES MELLITUS [None]
  - GENERALISED ANXIETY DISORDER [None]
  - PRESCRIBED OVERDOSE [None]
  - SLEEP APNOEA SYNDROME [None]
